FAERS Safety Report 11888013 (Version 2)
Quarter: 2016Q1

REPORT INFORMATION
  Report Type: Spontaneous
  Country: IT (occurrence: IT)
  Receive Date: 20160105
  Receipt Date: 20160107
  Transmission Date: 20160526
  Serious: Yes (Other)
  Sender: FDA-Public Use
  Company Number: IT-SUN PHARMACEUTICAL INDUSTRIES LTD-2015RR-108949

PATIENT

DRUGS (1)
  1. PARACETAMOL [Suspect]
     Active Substance: ACETAMINOPHEN
     Indication: PREMENSTRUAL SYNDROME
     Dosage: UNK, DAILY
     Route: 048

REACTIONS (3)
  - Pruritus [Unknown]
  - Urticaria [Unknown]
  - Rash generalised [Unknown]

NARRATIVE: CASE EVENT DATE: 20151106
